FAERS Safety Report 5014017-X (Version None)
Quarter: 2006Q2

REPORT INFORMATION
  Report Type: 
  Country: None (occurrence: None)
  Receive Date: 20060526
  Receipt Date: 20060526
  Transmission Date: 20061013
  Serious: Yes (Life-Threatening, Hospitalization, Disabling)
  Sender: FDA-Public Use
  Company Number: None

PATIENT
  Sex: Female
  Weight: 74.8435 kg

DRUGS (13)
  1. GLEEVEC [Suspect]
     Indication: BREAST CANCER METASTATIC
     Dosage: 400 MG ONCE DAILY PO
     Route: 048
     Dates: start: 20051228, end: 20060502
  2. TAXOTERE [Suspect]
     Indication: BREAST CANCER METASTATIC
     Dosage: 45.25 MG 3 DAYS/MONTH IV
     Route: 042
     Dates: start: 20051228, end: 20060503
  3. HUMULIN 70/30 [Concomitant]
  4. HUMULIN R [Concomitant]
  5. DIOVAN HCT [Concomitant]
  6. NEXIUM [Concomitant]
  7. NEURONTIN [Concomitant]
  8. OXYCODONE HCL [Concomitant]
  9. OXYCONTIN [Concomitant]
  10. FLONASE [Concomitant]
  11. MULTI-VITAMIN [Concomitant]
  12. VITAMIN B COMPLEX CAP [Concomitant]
  13. VIT C [Concomitant]

REACTIONS (9)
  - ABDOMINAL ABSCESS [None]
  - DIVERTICULAR PERFORATION [None]
  - DIVERTICULITIS [None]
  - HEPATIC MASS [None]
  - INTESTINAL MASS [None]
  - LARGE INTESTINE PERFORATION [None]
  - PLEURAL EFFUSION [None]
  - RECTAL PERFORATION [None]
  - SEPSIS [None]
